FAERS Safety Report 19800032 (Version 1)
Quarter: 2021Q3

REPORT INFORMATION
  Report Type: Spontaneous
  Country: US (occurrence: US)
  Receive Date: 20210907
  Receipt Date: 20210907
  Transmission Date: 20211014
  Serious: No
  Sender: FDA-Public Use
  Company Number: US-ASTRAZENECA-2021A708578

PATIENT
  Sex: Female

DRUGS (2)
  1. ENTRESTO [Concomitant]
     Active Substance: SACUBITRIL\VALSARTAN
  2. FARXIGA [Suspect]
     Active Substance: DAPAGLIFLOZIN PROPANEDIOL
     Indication: CARDIAC FAILURE CONGESTIVE
     Route: 048
     Dates: start: 20210806

REACTIONS (3)
  - Creatinine renal clearance increased [Unknown]
  - Glomerular filtration rate decreased [Unknown]
  - Renal impairment [Unknown]
